FAERS Safety Report 4286956-9 (Version None)
Quarter: 2004Q1

REPORT INFORMATION
  Report Type: 
  Country: None (occurrence: None)
  Receive Date: 20040206
  Receipt Date: 20031021
  Transmission Date: 20041129
  Serious: Yes (Other)
  Sender: FDA-Public Use
  Company Number: WAES 0310USA02435

PATIENT
  Age: 82 Year
  Sex: Female

DRUGS (11)
  1. [THERAPY UNSPECIFIED] [Concomitant]
     Indication: INJURY
  2. [THERAPY UNSPECIFIED] [Concomitant]
     Indication: STRESS SYMPTOMS
  3. FOSAMAX [Concomitant]
     Route: 048
  4. ANALGESIC OR ANESTHETIC (UNSPECIFIED) [Concomitant]
     Indication: INJURY
  5. ANALGESIC OR ANESTHETIC (UNSPECIFIED) [Concomitant]
     Indication: STRESS SYMPTOMS
  6. LUMIGAN [Concomitant]
  7. ARICEPT [Concomitant]
  8. TRUSOPT [Suspect]
     Indication: GLAUCOMA
     Route: 047
     Dates: start: 20010401, end: 20031201
  9. AVAPRO [Concomitant]
  10. MIACALCIN [Concomitant]
  11. ZOLOFT [Concomitant]

REACTIONS (8)
  - DEMENTIA [None]
  - DEPRESSION [None]
  - DRUG WITHDRAWAL SYNDROME [None]
  - HALLUCINATION, VISUAL [None]
  - PARANOIA [None]
  - PARANOID PERSONALITY DISORDER [None]
  - PSYCHOTIC DISORDER [None]
  - STRESS SYMPTOMS [None]
